FAERS Safety Report 6664271-3 (Version None)
Quarter: 2010Q2

REPORT INFORMATION
  Report Type: 
  Country: None (occurrence: None)
  Receive Date: 20100401
  Receipt Date: 20100323
  Transmission Date: 20101027
  Serious: Yes (Other)
  Sender: FDA-Public Use
  Company Number: PHEH2010US03252

PATIENT
  Sex: Female

DRUGS (13)
  1. TRILEPTAL [Suspect]
     Dosage: 150 MG, UNK
     Dates: start: 20000101
  2. NEXIUM [Suspect]
  3. ACIPHEX [Suspect]
  4. PROTONIX [Suspect]
  5. SIMVASTATIN [Suspect]
     Dosage: 40 MG, 1X A DAY
  6. LORAZEPAM [Suspect]
     Dosage: 1 TABLET AS NEEDED
  7. CLONIDINE [Suspect]
     Dosage: UNK, AS NEEDED
  8. CATAPRES                                /UNK/ [Suspect]
     Dosage: UNK, AS NEEDED
  9. AVAPRO [Suspect]
     Dosage: 150 MG, 2X A DAY
  10. PLAVIX [Suspect]
     Dosage: 75 MG, 1X A DAY
  11. FLUOXETINE [Suspect]
     Dosage: 20 MG, 1X A DAY
  12. ASPIRIN [Suspect]
     Dosage: UNK, 1X A DAY
  13. AMLODIPINE [Suspect]
     Dosage: 8TH OF A 10MG TABLET

REACTIONS (5)
  - AUTOIMMUNE DISORDER [None]
  - CONVULSION [None]
  - HYPOTENSION [None]
  - ORTHOSTATIC HYPERTENSION [None]
  - SLEEP DISORDER [None]
